FAERS Safety Report 8136204-4 (Version None)
Quarter: 2012Q1

REPORT INFORMATION
  Report Type: 
  Country: None (occurrence: None)
  Receive Date: 20120214
  Receipt Date: 20120206
  Transmission Date: 20120608
  Serious: Yes (Hospitalization)
  Sender: FDA-Public Use
  Company Number: RS-B.I. PHARMACEUTICALS,INC./RIDGEFIELD-2012-AP-00094AP

PATIENT
  Sex: Female
  Weight: 70 kg

DRUGS (5)
  1. PANTOPRAZOLE [Suspect]
     Indication: GASTRITIS PROPHYLAXIS
     Dates: start: 20111220, end: 20111230
  2. MELOXICAM [Suspect]
     Route: 048
     Dates: start: 20111220, end: 20111230
  3. ECOMEN [Concomitant]
     Indication: OSTEOPOROSIS PROPHYLAXIS
     Dates: end: 20120108
  4. OSTEOPEN [Concomitant]
     Indication: OSTEOPOROSIS PROPHYLAXIS
     Dates: end: 20120108
  5. NORFLOXACIN [Suspect]
     Indication: CYSTITIS
     Dates: start: 20111220, end: 20111230

REACTIONS (2)
  - TOXIC SKIN ERUPTION [None]
  - DERMATITIS ALLERGIC [None]
